FAERS Safety Report 21713526 (Version 1)
Quarter: 2022Q4

REPORT INFORMATION
  Report Type: Spontaneous
  Country: US (occurrence: None)
  Receive Date: 20221210
  Receipt Date: 20221210
  Transmission Date: 20230113
  Serious: Yes (Other)
  Sender: FDA-Public Use
  Company Number: None

PATIENT
  Age: 31 Year
  Sex: Female
  Weight: 67.5 kg

DRUGS (5)
  1. KOSAS REVEALER SKIN-IMPROVING FOUNDATION BROAD SPECTRUM SPF-25 VERY LI [Suspect]
     Active Substance: ZINC OXIDE
     Indication: Skin disorder
     Dosage: FREQUENCY : DAILY;?
     Route: 061
     Dates: start: 20221208, end: 20221208
  2. SERTRALINE [Concomitant]
     Active Substance: SERTRALINE HYDROCHLORIDE
  3. TRI-SPRINTEC [Concomitant]
     Active Substance: ETHINYL ESTRADIOL\NORGESTIMATE
  4. One-a-Day Multivitamin [Concomitant]
  5. VITAMIN B12 [Concomitant]
     Active Substance: CYANOCOBALAMIN

REACTIONS (5)
  - Erythema [None]
  - Pruritus [None]
  - Burning sensation [None]
  - Swelling face [None]
  - Product label issue [None]

NARRATIVE: CASE EVENT DATE: 20221208
